FAERS Safety Report 24330626 (Version 1)
Quarter: 2024Q3

REPORT INFORMATION
  Report Type: Spontaneous
  Country: CH (occurrence: CH)
  Receive Date: 20240918
  Receipt Date: 20240918
  Transmission Date: 20241016
  Serious: Yes (Hospitalization, Other)
  Sender: BRISTOL MYERS SQUIBB
  Company Number: None

PATIENT
  Age: 72 Year
  Sex: Male

DRUGS (8)
  1. OPDIVO [Suspect]
     Active Substance: NIVOLUMAB
     Indication: Renal cancer
     Dosage: OPDIVO) FROM 09.2022, FOLLOWING MAINTENANCE WITH OPDIVO INMONOTHERAPY..
     Route: 040
     Dates: start: 202209, end: 20240425
  2. OPDIVO [Suspect]
     Active Substance: NIVOLUMAB
     Dosage: OPDIVO) FROM 09.2022, FOLLOWING MAINTENANCE WITH OPDIVO INMONOTHERAPY..
     Route: 040
  3. YERVOY [Suspect]
     Active Substance: IPILIMUMAB
     Indication: Renal cancer
     Dates: start: 202209
  4. AXITINIB [Suspect]
     Active Substance: AXITINIB
     Indication: Renal cancer
     Route: 048
     Dates: start: 20240627, end: 20240717
  5. PERINDOPRIL SPIRIG [Concomitant]
     Indication: Product used for unknown indication
     Dosage: CHRONIC THERAPY
     Route: 048
  6. JARDIANCE [Concomitant]
     Active Substance: EMPAGLIFLOZIN
     Indication: Product used for unknown indication
     Dosage: CHRONIC THERAPY
     Route: 048
  7. JENTADUETO [Concomitant]
     Active Substance: LINAGLIPTIN\METFORMIN HYDROCHLORIDE
     Indication: Product used for unknown indication
     Dosage: CHRONIC THERAPY?1 DF = 2.5 MG/1000 MG? (1 {DF})
     Route: 048
  8. EUTHYROX [Concomitant]
     Active Substance: LEVOTHYROXINE SODIUM
     Indication: Product used for unknown indication
     Dosage: CHRONIC THERAPY
     Route: 048

REACTIONS (3)
  - Drug-induced liver injury [Recovered/Resolved]
  - Malignant neoplasm progression [Unknown]
  - Immune-mediated hepatitis [Unknown]

NARRATIVE: CASE EVENT DATE: 20230601
